FAERS Safety Report 22134490 (Version 1)
Quarter: 2023Q1

REPORT INFORMATION
  Report Type: Spontaneous
  Country: JP (occurrence: JP)
  Receive Date: 20230324
  Receipt Date: 20230324
  Transmission Date: 20230418
  Serious: Yes (Other)
  Sender: FDA-Public Use
  Company Number: JP-002147023-NVSJ2023JP005150

PATIENT
  Age: 35 Year
  Sex: Female

DRUGS (1)
  1. PAZOPANIB [Suspect]
     Active Substance: PAZOPANIB
     Indication: Osteosarcoma metastatic
     Dosage: UNK
     Route: 065

REACTIONS (7)
  - Ileal perforation [Unknown]
  - Metastases to peritoneum [Unknown]
  - Metastases to liver [Unknown]
  - Intestinal metastasis [Unknown]
  - Metastases to lung [Unknown]
  - Lymphangiosis carcinomatosa [Unknown]
  - Product use in unapproved indication [Unknown]
